FAERS Safety Report 8533973-6 (Version None)
Quarter: 2012Q2

REPORT INFORMATION
  Report Type: 
  Country: None (occurrence: None)
  Receive Date: 20120412
  Receipt Date: 20090217
  Transmission Date: 20120825
  Serious: Yes (Death)
  Sender: FDA-Public Use
  Company Number: PHEH2009US01369

PATIENT
  Age: 32 Year
  Sex: Male

DRUGS (5)
  1. LEXAPRO [Concomitant]
  2. GEODON (ZIPARSIDONE HYDROCHLORIDE) [Concomitant]
  3. TOFRANIL [Concomitant]
  4. CLOZARIL [Suspect]
     Indication: INTERMITTENT EXPLOSIVE DISORDER
     Dosage: 100 MG, BID, ORAL
     Route: 048
     Dates: start: 20070521, end: 20080101
  5. CLOZARIL [Suspect]
     Indication: DEVELOPMENTAL DELAY
     Dosage: 100 MG, BID, ORAL
     Route: 048
     Dates: start: 20070521, end: 20080101

REACTIONS (1)
  - DEATH [None]
